FAERS Safety Report 4443329-3 (Version None)
Quarter: 2004Q3

REPORT INFORMATION
  Report Type: 
  Country: None (occurrence: None)
  Receive Date: 20040901
  Receipt Date: 20040824
  Transmission Date: 20050211
  Serious: Yes (Other)
  Sender: FDA-Public Use
  Company Number: 2004229962US

PATIENT
  Age: 62 Year
  Sex: Female

DRUGS (3)
  1. PROVERA [Suspect]
     Dates: start: 19850101, end: 19990101
  2. OGEN [Suspect]
     Dates: start: 19900101, end: 19990101
  3. PREMARIN [Suspect]
     Dates: start: 19800101, end: 19900101

REACTIONS (1)
  - BREAST CANCER FEMALE [None]
